FAERS Safety Report 9216302 (Version 3)
Quarter: 2013Q2

REPORT INFORMATION
  Report Type: Spontaneous
  Country: AU (occurrence: None)
  Receive Date: 20130404
  Receipt Date: 20130506
  Transmission Date: 20140414
  Serious: Yes (Hospitalization)
  Sender: FDA-Public Use
  Company Number: 2013TP000136

PATIENT
  Sex: Male
  Weight: 86.4 kg

DRUGS (2)
  1. VERSATIS [Suspect]
     Indication: NEURALGIA
     Route: 061
     Dates: start: 20130211, end: 20130319
  2. PARKEMED [Concomitant]

REACTIONS (1)
  - Osteoarthritis [None]
